FAERS Safety Report 8590762-4 (Version None)
Quarter: 2012Q3

REPORT INFORMATION
  Report Type: 
  Country: None (occurrence: None)
  Receive Date: 20120813
  Receipt Date: 20120807
  Transmission Date: 20120928
  Serious: Yes (Life-Threatening, Other)
  Sender: FDA-Public Use
  Company Number: JP-PFIZER INC-2012193293

PATIENT
  Age: 70 Year
  Weight: 60 kg

DRUGS (1)
  1. FOSPHENYTOIN SODIUM [Suspect]
     Indication: STATUS EPILEPTICUS
     Dosage: 15 ML, SINGLE
     Route: 042
     Dates: start: 20120806, end: 20120806

REACTIONS (2)
  - BLOOD PRESSURE DECREASED [None]
  - RESPIRATORY ARREST [None]
